FAERS Safety Report 5210579-8 (Version None)
Quarter: 2007Q1

REPORT INFORMATION
  Report Type: 
  Country: None (occurrence: None)
  Receive Date: 20070117
  Receipt Date: 20070109
  Transmission Date: 20070707
  Serious: Yes (Hospitalization, Disabling)
  Sender: FDA-Public Use
  Company Number: US-BAXTER-2006BH013849

PATIENT
  Sex: Female

DRUGS (2)
  1. PROMETHAZINE HCL [Suspect]
     Indication: DRUG USE FOR UNKNOWN INDICATION
     Dosage: DOSE UNIT:UNKNOWN
     Route: 042
     Dates: start: 20050905, end: 20050905
  2. MORPHINE SULFATE [Concomitant]
     Indication: DRUG USE FOR UNKNOWN INDICATION
     Dosage: DOSE UNIT:UNKNOWN
     Route: 065
     Dates: start: 20050904, end: 20050904

REACTIONS (6)
  - AMPUTATION [None]
  - EMOTIONAL DISTRESS [None]
  - GANGRENE [None]
  - PAIN [None]
  - PARAESTHESIA [None]
  - RASH [None]
